FAERS Safety Report 8532616-5 (Version None)
Quarter: 2012Q3

REPORT INFORMATION
  Report Type: 
  Country: None (occurrence: None)
  Receive Date: 20120724
  Receipt Date: 20120714
  Transmission Date: 20120928
  Serious: Yes (Hospitalization)
  Sender: FDA-Public Use
  Company Number: US-BAYER-2010-000604

PATIENT
  Age: 33 Year
  Sex: Female

DRUGS (3)
  1. YAZ [Suspect]
     Dosage: UNK
     Dates: start: 20060101, end: 20070101
  2. SYNTHROID [Concomitant]
  3. LOW-OGESTREL-28 [Concomitant]
     Dosage: UNK

REACTIONS (1)
  - DEEP VEIN THROMBOSIS [None]
